FAERS Safety Report 10203900 (Version 1)
Quarter: 2014Q2

REPORT INFORMATION
  Report Type: Spontaneous
  Country: US (occurrence: None)
  Receive Date: 20140523
  Receipt Date: 20140523
  Transmission Date: 20141212
  Serious: Yes (Other)
  Sender: FDA-Public Use
  Company Number: UNT-2014-000395

PATIENT
  Sex: Female
  Weight: 89.8 kg

DRUGS (1)
  1. TYVASO [Suspect]
     Indication: PULMONARY ARTERIAL HYPERTENSION
     Dates: start: 20140428

REACTIONS (4)
  - Weight increased [None]
  - Dyspnoea [None]
  - Peripheral swelling [None]
  - Condition aggravated [None]
